FAERS Safety Report 23557112 (Version 1)
Quarter: 2024Q1

REPORT INFORMATION
  Report Type: Spontaneous
  Country: US (occurrence: US)
  Receive Date: 20240223
  Receipt Date: 20240223
  Transmission Date: 20240410
  Serious: No
  Sender: FDA-Public Use
  Company Number: US-BIOCON BIOLOGICS LIMITED-2023M1103513

PATIENT
  Sex: Male
  Weight: 136 kg

DRUGS (3)
  1. SEMGLEE (INSULIN GLARGINE-YFGN) [Suspect]
     Active Substance: INSULIN GLARGINE-YFGN
     Indication: Type 2 diabetes mellitus
     Dosage: 50 UNITS/ML, QD (IN MORNING)
     Route: 058
  2. SEMGLEE (INSULIN GLARGINE-YFGN) [Suspect]
     Active Substance: INSULIN GLARGINE-YFGN
     Dosage: 45 UNITS/ML, QD (IN NIGHT)
     Route: 058
  3. Injector, Pen [Concomitant]
     Indication: Type 2 diabetes mellitus

REACTIONS (2)
  - Device mechanical issue [Unknown]
  - Product quality issue [Unknown]
